FAERS Safety Report 15118592 (Version 2)
Quarter: 2018Q3

REPORT INFORMATION
  Report Type: Spontaneous
  Country: US (occurrence: US)
  Receive Date: 20180709
  Receipt Date: 20180709
  Transmission Date: 20181010
  Serious: No
  Sender: FDA-Public Use
  Company Number: US-LUPIN PHARMACEUTICALS INC.-2018-02947

PATIENT
  Age: 60 Year
  Sex: Female
  Weight: 58.96 kg

DRUGS (2)
  1. DULOXETINE DELAYED?RELEASE CAPSULES 20 MG [Suspect]
     Active Substance: DULOXETINE
     Indication: ANXIETY
  2. DULOXETINE DELAYED?RELEASE CAPSULES 20 MG [Suspect]
     Active Substance: DULOXETINE
     Indication: ARTHRALGIA
     Dosage: 20 MG, QD
     Route: 048
     Dates: start: 20180328

REACTIONS (4)
  - Nausea [Not Recovered/Not Resolved]
  - Drug effect decreased [Unknown]
  - Dizziness [Not Recovered/Not Resolved]
  - Abnormal dreams [Not Recovered/Not Resolved]

NARRATIVE: CASE EVENT DATE: 20180328
